FAERS Safety Report 6058437-3 (Version None)
Quarter: 2009Q1

REPORT INFORMATION
  Report Type: 
  Country: None (occurrence: None)
  Receive Date: 20090130
  Receipt Date: 20090123
  Transmission Date: 20090719
  Serious: Yes (Other)
  Sender: FDA-Public Use
  Company Number: JP-NOVOPROD-283475

PATIENT
  Age: 13 Year
  Sex: Male

DRUGS (2)
  1. NORDITROPIN S CHU [Suspect]
     Indication: GROWTH HORMONE DEFICIENCY
  2. NORDITROPIN S CHU [Suspect]
     Indication: DWARFISM

REACTIONS (1)
  - BONE SARCOMA [None]
